FAERS Safety Report 12107294 (Version 1)
Quarter: 2016Q1

REPORT INFORMATION
  Report Type: Report from Study
  Country: AU (occurrence: AU)
  Receive Date: 20160223
  Receipt Date: 20160223
  Transmission Date: 20160526
  Serious: Yes (Death)
  Sender: FDA-Public Use
  Company Number: AU-ROCHE-1588067

PATIENT
  Sex: Female

DRUGS (4)
  1. RANIBIZUMAB [Suspect]
     Active Substance: RANIBIZUMAB
     Dosage: IN 0.05 ML
     Route: 050
     Dates: start: 20150416, end: 20150416
  2. AMLODIPINE [Concomitant]
     Active Substance: AMLODIPINE BESYLATE
  3. RANIBIZUMAB [Suspect]
     Active Substance: RANIBIZUMAB
     Indication: NEOVASCULAR AGE-RELATED MACULAR DEGENERATION
     Dosage: IN 0.05 ML,
     Route: 050
     Dates: start: 20070904
  4. MINAX [Concomitant]
     Active Substance: METAMIZOLE

REACTIONS (1)
  - Cardiac failure congestive [Fatal]
